FAERS Safety Report 9344273 (Version 1)
Quarter: 2013Q2

REPORT INFORMATION
  Report Type: Spontaneous
  Country: US (occurrence: US)
  Receive Date: 20130612
  Receipt Date: 20130612
  Transmission Date: 20140414
  Serious: No
  Sender: FDA-Public Use
  Company Number: US-009507513-1306USA001721

PATIENT
  Sex: Female

DRUGS (5)
  1. SINGULAIR [Suspect]
     Dosage: 4 MG TOTAL DAILY DOSE
     Route: 048
  2. NASONEX [Concomitant]
     Route: 045
  3. ALBUTEROL [Concomitant]
     Dosage: UNK, PRN
     Route: 048
  4. CETIRIZINE HYDROCHLORIDE [Concomitant]
     Dosage: UNK, PRN
     Route: 048
  5. ACETAMINOPHEN [Concomitant]
     Dosage: UNK, PRN

REACTIONS (2)
  - Emotional disorder [Unknown]
  - Crying [Unknown]
